FAERS Safety Report 6094076-6 (Version None)
Quarter: 2009Q1

REPORT INFORMATION
  Report Type: 
  Country: None (occurrence: None)
  Receive Date: 20090224
  Receipt Date: 20090224
  Transmission Date: 20090719
  Serious: Yes (Other)
  Sender: FDA-Public Use
  Company Number: None

PATIENT
  Age: 28 Year
  Sex: Female
  Weight: 72.5755 kg

DRUGS (2)
  1. CYMBALTA [Suspect]
     Indication: ANXIETY
     Dosage: 30-60 MG DAILY PO
     Route: 048
     Dates: start: 20070120, end: 20090223
  2. CYMBALTA [Suspect]
     Indication: DEPRESSION
     Dosage: 30-60 MG DAILY PO
     Route: 048
     Dates: start: 20070120, end: 20090223

REACTIONS (7)
  - DIZZINESS [None]
  - DRUG WITHDRAWAL SYNDROME [None]
  - FATIGUE [None]
  - INSOMNIA [None]
  - IRRITABILITY [None]
  - PARAESTHESIA [None]
  - TINNITUS [None]
